FAERS Safety Report 14322198 (Version 1)
Quarter: 2017Q4

REPORT INFORMATION
  Report Type: Spontaneous
  Country: NL (occurrence: NL)
  Receive Date: 20171225
  Receipt Date: 20171225
  Transmission Date: 20180321
  Serious: Yes (Hospitalization)
  Sender: FDA-Public Use
  Company Number: PHHY2017NL192891

PATIENT
  Age: 69 Year
  Sex: Male
  Weight: 56 kg

DRUGS (4)
  1. NITRAZEPAM [Concomitant]
     Active Substance: NITRAZEPAM
     Indication: PRODUCT USED FOR UNKNOWN INDICATION
     Route: 065
  2. ACENOCOUMAROL [Concomitant]
     Active Substance: ACENOCOUMAROL
     Indication: PRODUCT USED FOR UNKNOWN INDICATION
     Route: 065
  3. EVEROLIMUS. [Suspect]
     Active Substance: EVEROLIMUS
     Indication: PRODUCT USED FOR UNKNOWN INDICATION
     Dosage: 5 MG, UNK1X PER DAG 1 STUK
     Route: 065
     Dates: start: 20171102, end: 20171104
  4. PARACETAMOL [Concomitant]
     Active Substance: ACETAMINOPHEN
     Indication: PRODUCT USED FOR UNKNOWN INDICATION
     Route: 065

REACTIONS (7)
  - Alanine aminotransferase increased [Recovering/Resolving]
  - Cell death [Recovering/Resolving]
  - Haemoglobin decreased [Recovering/Resolving]
  - Blood lactate dehydrogenase increased [Recovering/Resolving]
  - Blood creatine phosphokinase increased [Recovering/Resolving]
  - Diarrhoea [Recovering/Resolving]
  - Haptoglobin decreased [Recovering/Resolving]

NARRATIVE: CASE EVENT DATE: 20171107
